FAERS Safety Report 11099800 (Version 1)
Quarter: 2015Q2

REPORT INFORMATION
  Report Type: Spontaneous
  Country: US (occurrence: US)
  Receive Date: 20150508
  Receipt Date: 20150508
  Transmission Date: 20150821
  Serious: Yes (Other)
  Sender: FDA-Public Use
  Company Number: US-PFIZER INC-2015152195

PATIENT
  Sex: Male

DRUGS (2)
  1. VIAGRA [Suspect]
     Active Substance: SILDENAFIL CITRATE
     Dosage: UNK
     Dates: start: 2012
  2. VIAGRA [Suspect]
     Active Substance: SILDENAFIL CITRATE
     Dosage: ONCE EVERY FEW WEEKS

REACTIONS (2)
  - Visual impairment [Unknown]
  - Eye disorder [Unknown]
